FAERS Safety Report 15547141 (Version 1)
Quarter: 2018Q4

REPORT INFORMATION
  Report Type: Spontaneous
  Country: US (occurrence: EG)
  Receive Date: 20181024
  Receipt Date: 20181024
  Transmission Date: 20190205
  Serious: Yes (Death, Other)
  Sender: FDA-Public Use
  Company Number: US-APOPHARMA USA, INC.-2018AP022706

PATIENT

DRUGS (4)
  1. ALKERAN [Suspect]
     Active Substance: MELPHALAN
     Indication: STEM CELL TRANSPLANT
     Dosage: 70 MG/M2, OTHER
     Route: 042
  2. BUSULFAN. [Suspect]
     Active Substance: BUSULFAN
     Indication: STEM CELL TRANSPLANT
     Dosage: 5 MG/KG, QD
     Route: 048
  3. BUSULFAN. [Suspect]
     Active Substance: BUSULFAN
     Dosage: 4 MG/KG, QD
     Route: 048
  4. PHENYTOIN. [Concomitant]
     Active Substance: PHENYTOIN
     Indication: SEIZURE PROPHYLAXIS
     Dosage: 6 MG/KG, QD
     Route: 065

REACTIONS (5)
  - Venoocclusive liver disease [Unknown]
  - Pulmonary oedema [Unknown]
  - Death [Fatal]
  - Acute kidney injury [Unknown]
  - Respiratory failure [Unknown]
